FAERS Safety Report 10435008 (Version 1)
Quarter: 2014Q3

REPORT INFORMATION
  Report Type: Spontaneous
  Country: US (occurrence: None)
  Receive Date: 20140815
  Receipt Date: 20140815
  Transmission Date: 20150326
  Serious: No
  Sender: FDA-Public Use
  Company Number: 2014TUS005232

PATIENT
  Age: 56 Year
  Sex: Female
  Weight: 104.3 kg

DRUGS (10)
  1. TRAMADOL (TRAMADOL) [Concomitant]
     Active Substance: TRAMADOL
  2. TRAZODONE [Concomitant]
     Active Substance: TRAZODONE HYDROCHLORIDE
  3. MORPHINE (MORPHINE) [Concomitant]
  4. MAXALT /(RIZATRIPTAN) [Concomitant]
  5. LORAZEPAM (LORAZEPAM) [Concomitant]
     Active Substance: LORAZEPAM
  6. BRINTELLIX [Suspect]
     Active Substance: VORTIOXETINE HYDROBROMIDE
     Indication: FIBROMYALGIA
     Route: 048
     Dates: start: 201404
  7. METFORMIN [Concomitant]
     Active Substance: METFORMIN HYDROCHLORIDE
  8. ATENOLOL (ATENOLOL) [Concomitant]
     Active Substance: ATENOLOL
  9. OMEPRAZOLE (OMEPRAZOLE) [Concomitant]
     Active Substance: OMEPRAZOLE
  10. GEMFIBROZIL (GEMFIBROZIL) [Concomitant]
     Active Substance: GEMFIBROZIL

REACTIONS (4)
  - Blood sodium decreased [None]
  - Diarrhoea [None]
  - Hyperhidrosis [None]
  - Muscle spasms [None]

NARRATIVE: CASE EVENT DATE: 201405
